FAERS Safety Report 25860502 (Version 1)
Quarter: 2025Q3

REPORT INFORMATION
  Report Type: Spontaneous
  Country: US (occurrence: None)
  Receive Date: 20250928
  Receipt Date: 20250928
  Transmission Date: 20251021
  Serious: Yes (unspecified)
  Sender: FDA-CTU
  Company Number: None

PATIENT
  Age: 57 Year
  Sex: Female
  Weight: 140 kg

DRUGS (1)
  1. GAMUNEX-C [Suspect]
     Active Substance: HUMAN IMMUNOGLOBULIN G
     Indication: Parkinson^s disease
     Route: 041

REACTIONS (12)
  - Infusion related reaction [None]
  - Malaise [None]
  - Dyspnoea [None]
  - Oropharyngeal pain [None]
  - Wheezing [None]
  - Pruritus [None]
  - Blood pressure systolic increased [None]
  - Erythema [None]
  - Throat tightness [None]
  - Urticaria [None]
  - Swollen tongue [None]
  - Lip swelling [None]

NARRATIVE: CASE EVENT DATE: 20250923
